FAERS Safety Report 6410688-1 (Version None)
Quarter: 2009Q4

REPORT INFORMATION
  Report Type: 
  Country: None (occurrence: None)
  Receive Date: 20091020
  Receipt Date: 20091020
  Transmission Date: 20100525
  Serious: Yes (Death, Hospitalization)
  Sender: FDA-Public Use
  Company Number: None

PATIENT
  Sex: Female
  Weight: 72 kg

DRUGS (3)
  1. CYTARABINE [Suspect]
     Dosage: 1260 MG
     Dates: end: 20090607
  2. DAUNORUBICIN HCL [Suspect]
     Dosage: 360 MG
     Dates: end: 20090603
  3. ETOPOSIDE [Suspect]
     Dosage: 405 MG
     Dates: end: 20090603

REACTIONS (13)
  - ACUTE HEPATIC FAILURE [None]
  - ACUTE MYELOID LEUKAEMIA [None]
  - ACUTE RESPIRATORY DISTRESS SYNDROME [None]
  - ACUTE RESPIRATORY FAILURE [None]
  - COLITIS [None]
  - DIFFUSE ALVEOLAR DAMAGE [None]
  - HYPERTENSION [None]
  - OXYGEN SATURATION DECREASED [None]
  - PNEUMONIA [None]
  - SEPTIC SHOCK [None]
  - TACHYCARDIA [None]
  - TACHYPNOEA [None]
  - VENOOCCLUSIVE DISEASE [None]
